FAERS Safety Report 22119309 (Version 1)
Quarter: 2023Q1

REPORT INFORMATION
  Report Type: Report from Study
  Country: CA (occurrence: CA)
  Receive Date: 20230321
  Receipt Date: 20230321
  Transmission Date: 20230418
  Serious: Yes (Other)
  Sender: FDA-Public Use
  Company Number: CA-KOREA IPSEN Pharma-2022-18752

PATIENT
  Sex: Female

DRUGS (5)
  1. LANREOTIDE ACETATE [Suspect]
     Active Substance: LANREOTIDE ACETATE
     Indication: Neuroendocrine tumour
     Dosage: 120MG, EVERY FOUR WEEKS
     Route: 058
     Dates: start: 20210920
  2. DOMPERIDONE [Concomitant]
     Active Substance: DOMPERIDONE
     Dosage: 10MG, TID
  3. ONDANSETRON [Concomitant]
     Active Substance: ONDANSETRON
     Indication: Gastric disorder
     Dosage: 8MG, TID AS NEEDED (TAKES TWICE/ DAY FOR STOMACH)
  4. ESOMEPRAZOLE [Concomitant]
     Active Substance: ESOMEPRAZOLE
     Indication: Reflux gastritis
     Dosage: 20MG TWICE/ DAY FOR REFLUX (BUT TAKING IT ONCE DAILY)
  5. ASPIRIN [Concomitant]
     Active Substance: ASPIRIN
     Indication: Immune thrombocytopenia
     Dosage: 1/DAY FOR ANTIBODY SYNDROME

REACTIONS (2)
  - Metastases to liver [Not Recovered/Not Resolved]
  - Pancreatic neoplasm [Recovering/Resolving]
